FAERS Safety Report 18294187 (Version 1)
Quarter: 2020Q3

REPORT INFORMATION
  Report Type: Spontaneous
  Country: US (occurrence: US)
  Receive Date: 20200921
  Receipt Date: 20200921
  Transmission Date: 20201103
  Serious: Yes (Hospitalization)
  Sender: FDA-Public Use
  Company Number: None

PATIENT
  Sex: Female

DRUGS (5)
  1. GABAPENTIN. [Concomitant]
     Active Substance: GABAPENTIN
  2. TADALAFIL 20 MG [Suspect]
     Active Substance: TADALAFIL
     Indication: PULMONARY ARTERIAL HYPERTENSION
     Dosage: *TM
     Route: 048
     Dates: start: 20181025
  3. KETOCONAZOLE. [Concomitant]
     Active Substance: KETOCONAZOLE
  4. TRAMADOL. [Concomitant]
     Active Substance: TRAMADOL
  5. KLOR?CON [Concomitant]
     Active Substance: POTASSIUM CHLORIDE

REACTIONS (2)
  - Peripheral swelling [None]
  - Fluid retention [None]
